FAERS Safety Report 20771592 (Version 3)
Quarter: 2022Q2

REPORT INFORMATION
  Report Type: Spontaneous
  Country: ES (occurrence: ES)
  Receive Date: 20220430
  Receipt Date: 20220520
  Transmission Date: 20220721
  Serious: Yes (Death, Hospitalization)
  Sender: FDA-Public Use
  Company Number: ES-NOVARTISPH-NVSC2022ES099920

PATIENT
  Age: 49 Year
  Sex: Female
  Weight: 56 kg

DRUGS (9)
  1. FULVESTRANT [Suspect]
     Active Substance: FULVESTRANT
     Indication: Breast cancer metastatic
     Dosage: 250 MG (250 MG/5ML, 2 IM INJECTIONS EVERY 28 DAYS)
     Route: 030
     Dates: start: 20181019, end: 20181102
  2. PALBOCICLIB [Suspect]
     Active Substance: PALBOCICLIB
     Indication: Breast cancer metastatic
     Dosage: 100 MG, DAILY CYCLES OF 21 DAYS, REST 7 DAYS
     Route: 048
     Dates: start: 20181029, end: 20181105
  3. PHYTONADIONE [Concomitant]
     Active Substance: PHYTONADIONE
     Indication: Product used for unknown indication
     Dosage: UNK
     Route: 030
     Dates: start: 20181105
  4. METAMIZOL [Concomitant]
     Active Substance: METAMIZOLE SODIUM
     Indication: Pain
     Dosage: UNK
     Route: 048
     Dates: start: 20160831
  5. ALPRAZOLAM [Concomitant]
     Active Substance: ALPRAZOLAM
     Indication: Product used for unknown indication
     Dosage: UNK
     Route: 048
  6. TAPENTADOL HYDROCHLORIDE [Concomitant]
     Active Substance: TAPENTADOL HYDROCHLORIDE
     Indication: Pain
     Dosage: RETARD
     Route: 048
     Dates: start: 20180927
  7. OMEPRAZOLE [Concomitant]
     Active Substance: OMEPRAZOLE
     Indication: Product used for unknown indication
     Dosage: UNK
     Route: 048
  8. FUROSEMIDE [Concomitant]
     Active Substance: FUROSEMIDE
     Indication: Asthenia
     Dosage: UNK
     Route: 048
     Dates: start: 20181029
  9. LYRICA [Concomitant]
     Active Substance: PREGABALIN
     Indication: Pain
     Dosage: UNK
     Route: 048
     Dates: start: 20180927

REACTIONS (3)
  - Platelet count decreased [Fatal]
  - Neutrophil count decreased [Fatal]
  - Fatigue [Fatal]

NARRATIVE: CASE EVENT DATE: 20181102
